FAERS Safety Report 22221344 (Version 1)
Quarter: 2023Q2

REPORT INFORMATION
  Report Type: Report from Study
  Country: US (occurrence: US)
  Receive Date: 20230418
  Receipt Date: 20230418
  Transmission Date: 20230722
  Serious: Yes (Other)
  Sender: FDA-Public Use
  Company Number: US-ORPHANEU-2023002263

PATIENT

DRUGS (2)
  1. CYSTADANE [Suspect]
     Active Substance: BETAINE
     Indication: Homocystinuria
     Dosage: 3 DOSAGE FORM, QD
     Route: 065
  2. CYSTADANE [Suspect]
     Active Substance: BETAINE
     Dosage: 3 SCOOPS DAILY
     Route: 065

REACTIONS (4)
  - Cholelithiasis [Unknown]
  - Blood homocysteine increased [Not Recovered/Not Resolved]
  - Illness [Unknown]
  - Off label use [Recovered/Resolved]

NARRATIVE: CASE EVENT DATE: 20230101
